FAERS Safety Report 6305227-X (Version None)
Quarter: 2009Q3

REPORT INFORMATION
  Report Type: 
  Country: None (occurrence: None)
  Receive Date: 20090810
  Receipt Date: 20090810
  Transmission Date: 20100115
  Serious: Yes (Other)
  Sender: FDA-Public Use
  Company Number: None

PATIENT
  Sex: Female

DRUGS (1)
  1. TOPIRAMATE [Suspect]
     Indication: TRIGEMINAL NEURALGIA
     Dosage: 25MG 5-6 PER DAY 5-6/DAY INCREACED TO 10
     Dates: start: 20090701, end: 20090807

REACTIONS (2)
  - PRODUCT SUBSTITUTION ISSUE [None]
  - TRIGEMINAL NEURALGIA [None]
